FAERS Safety Report 8371988-1 (Version None)
Quarter: 2012Q2

REPORT INFORMATION
  Report Type: 
  Country: None (occurrence: None)
  Receive Date: 20120518
  Receipt Date: 20120510
  Transmission Date: 20120825
  Serious: Yes (Hospitalization)
  Sender: FDA-Public Use
  Company Number: GB-ROCHE-1068595

PATIENT
  Age: 84 Year
  Sex: Female
  Weight: 41.2 kg

DRUGS (2)
  1. VEMURAFENIB [Suspect]
     Indication: METASTATIC MALIGNANT MELANOMA
     Dosage: LAST DOSE PRIOR TO SAE: 13/APR/2012
     Route: 048
     Dates: start: 20120413
  2. ATENOLOL [Concomitant]

REACTIONS (1)
  - ATRIAL FLUTTER [None]
